FAERS Safety Report 8492909-7 (Version None)
Quarter: 2012Q3

REPORT INFORMATION
  Report Type: 
  Country: None (occurrence: None)
  Receive Date: 20120706
  Receipt Date: 20120629
  Transmission Date: 20120928
  Serious: Yes (Hospitalization)
  Sender: FDA-Public Use
  Company Number: US-GLAXOSMITHKLINE-A0884807A

PATIENT
  Age: 58 Year
  Sex: Male
  Weight: 112.7 kg

DRUGS (1)
  1. AVANDIA [Suspect]
     Indication: TYPE 2 DIABETES MELLITUS
     Route: 048
     Dates: start: 20030101, end: 20040101

REACTIONS (2)
  - RENAL FAILURE [None]
  - CORONARY ARTERY DISEASE [None]
